FAERS Safety Report 5080780-5 (Version None)
Quarter: 2006Q3

REPORT INFORMATION
  Report Type: 
  Country: None (occurrence: None)
  Receive Date: 20060809
  Receipt Date: 20060731
  Transmission Date: 20061208
  Serious: Yes (Other)
  Sender: FDA-Public Use
  Company Number: 200613096GDS

PATIENT
  Age: 67 Year
  Sex: Female

DRUGS (7)
  1. ASPIRIN [Suspect]
     Indication: ANTICOAGULANT THERAPY
     Dosage: 100 MG, TOTAL DAILY, ORAL
     Route: 048
     Dates: start: 20041101, end: 20060321
  2. ASPIRIN [Suspect]
     Indication: ANTICOAGULANT THERAPY
     Dosage: 100 MG, TOTAL DAILY, ORAL
     Route: 048
     Dates: start: 20060326
  3. WARFARIN [Suspect]
     Indication: ANTICOAGULANT THERAPY
     Dosage: 3 MG, TOTAL DAILY, ORAL
     Route: 048
     Dates: start: 20041101, end: 20060321
  4. WARFARIN [Suspect]
     Indication: ANTICOAGULANT THERAPY
     Dosage: 3 MG, TOTAL DAILY, ORAL
     Route: 048
     Dates: start: 20060326
  5. DIOVAN [Concomitant]
  6. ADALAT [Concomitant]
  7. SIGMART [Concomitant]

REACTIONS (8)
  - BLOOD PRESSURE SYSTOLIC INCREASED [None]
  - COLONIC HAEMATOMA [None]
  - HAEMATOCRIT DECREASED [None]
  - HAEMOGLOBIN DECREASED [None]
  - LOWER GASTROINTESTINAL HAEMORRHAGE [None]
  - MUCOSAL EXCORIATION [None]
  - RED BLOOD CELL COUNT DECREASED [None]
  - WHITE BLOOD CELL COUNT INCREASED [None]
